FAERS Safety Report 14828146 (Version 2)
Quarter: 2018Q3

REPORT INFORMATION
  Report Type: Spontaneous
  Country: US (occurrence: US)
  Receive Date: 20180430
  Receipt Date: 20180713
  Transmission Date: 20181010
  Serious: No
  Sender: FDA-Public Use
  Company Number: US-GLAXOSMITHKLINE-US2018069520

PATIENT
  Age: 76 Year
  Sex: Female

DRUGS (2)
  1. ALLI [Suspect]
     Active Substance: ORLISTAT
     Dosage: UNK
  2. ALLI [Suspect]
     Active Substance: ORLISTAT
     Indication: BLOOD CHOLESTEROL
     Dosage: UNK

REACTIONS (2)
  - Product use in unapproved indication [Unknown]
  - Drug effective for unapproved indication [Unknown]
